FAERS Safety Report 4945637-6 (Version None)
Quarter: 2006Q1

REPORT INFORMATION
  Report Type: 
  Country: None (occurrence: None)
  Receive Date: 20060117
  Receipt Date: 20050125
  Transmission Date: 20060701
  Serious: Yes (Hospitalization)
  Sender: FDA-Public Use
  Company Number: A03200201411

PATIENT
  Age: 74 Year
  Sex: Male
  Weight: 65.7716 kg

DRUGS (13)
  1. PLAVIX [Suspect]
     Indication: CEREBROVASCULAR ACCIDENT PROPHYLAXIS
     Dosage: 75 MG QD ORAL
     Route: 048
     Dates: start: 20010101
  2. PLAVIX [Suspect]
     Indication: MITRAL VALVE REPLACEMENT
     Dosage: 75 MG QD ORAL
     Route: 048
     Dates: start: 20010101
  3. PLAVIX [Suspect]
     Indication: CEREBROVASCULAR ACCIDENT PROPHYLAXIS
     Dosage: 75 MG QD ORAL
     Route: 048
  4. PLAVIX [Suspect]
     Indication: MITRAL VALVE REPLACEMENT
     Dosage: 75 MG QD ORAL
     Route: 048
  5. ACETYLSALICYLIC ACID SRT [Concomitant]
  6. SIMVASTATIN [Concomitant]
  7. WARFARIN SODIUM [Concomitant]
  8. DIPYRIDAMOLE [Concomitant]
  9. DIGOXIN [Concomitant]
  10. SIMVASTATIN [Concomitant]
  11. CARBIDOPA [Concomitant]
  12. VITAMIN E [Concomitant]
  13. FINASTERIDE [Concomitant]

REACTIONS (5)
  - ABDOMINAL PAIN UPPER [None]
  - CEREBROVASCULAR ACCIDENT [None]
  - CONDITION AGGRAVATED [None]
  - INTERNATIONAL NORMALISED RATIO INCREASED [None]
  - PAIN IN EXTREMITY [None]
